FAERS Safety Report 4974887-8 (Version None)
Quarter: 2006Q1

REPORT INFORMATION
  Report Type: 
  Country: None (occurrence: None)
  Receive Date: 20060227
  Receipt Date: 20051122
  Transmission Date: 20060701
  Serious: No
  Sender: FDA-Public Use
  Company Number: PHEH2005US12848

PATIENT
  Age: 74 Year
  Sex: Female

DRUGS (5)
  1. ENABLEX [Suspect]
     Indication: HYPERTONIC BLADDER
     Dosage: 15 MG, QD
     Dates: start: 20051116
  2. COUMADIN [Concomitant]
  3. VYTORIN [Concomitant]
  4. ATENOLOL [Concomitant]
  5. THYROID HORMONES (NO INGREDIENTS/SUBSTANCES) [Concomitant]

REACTIONS (2)
  - CONSTIPATION [None]
  - DRY MOUTH [None]
